FAERS Safety Report 8099078-6 (Version None)
Quarter: 2012Q1

REPORT INFORMATION
  Report Type: 
  Country: None (occurrence: None)
  Receive Date: 20120129
  Receipt Date: 20111025
  Transmission Date: 20120608
  Serious: No
  Sender: FDA-Public Use
  Company Number: US-ABBOTT-11P-163-0869052-00

PATIENT
  Sex: Female

DRUGS (8)
  1. ASACOL [Concomitant]
     Indication: CROHN'S DISEASE
  2. HUMIRA [Suspect]
     Indication: CROHN'S DISEASE
     Route: 058
     Dates: start: 20101101
  3. MICARDIS HCT [Concomitant]
     Indication: HYPERTENSION
  4. DOXAZOSIN [Concomitant]
     Indication: HYPERTENSION
     Dosage: ONCE DAILY AT NIGHT
  5. LEVOTHYROXINE SODIUM [Concomitant]
     Indication: HYPOTHYROIDISM
  6. TAMSULOSIN HCL [Concomitant]
     Indication: PRODUCT USED FOR UNKNOWN INDICATION
  7. NITROFURANTOIN [Concomitant]
     Indication: BLADDER DISORDER
     Dosage: AT NIGHT
  8. ENABLEX [Concomitant]
     Indication: PRODUCT USED FOR UNKNOWN INDICATION

REACTIONS (4)
  - ABDOMINAL PAIN [None]
  - FEELING OF BODY TEMPERATURE CHANGE [None]
  - ARTHRALGIA [None]
  - DIARRHOEA [None]
